FAERS Safety Report 19215681 (Version 1)
Quarter: 2021Q2

REPORT INFORMATION
  Report Type: Spontaneous
  Country: HR (occurrence: HR)
  Receive Date: 20210505
  Receipt Date: 20210505
  Transmission Date: 20210717
  Serious: Yes (Other)
  Sender: FDA-Public Use
  Company Number: HR-TEVA-2021-HR-1906818

PATIENT
  Age: 12 Year
  Sex: Female

DRUGS (5)
  1. RISPERIDON PLIVA [Suspect]
     Active Substance: RISPERIDONE
     Dosage: 2MILLIGRAM
     Route: 048
     Dates: start: 20210316, end: 20210316
  2. DIAZEPAM. [Suspect]
     Active Substance: DIAZEPAM
     Dosage: 20MILLIGRAM
     Route: 048
     Dates: start: 20210316, end: 20210316
  3. RIVOTRIL [Suspect]
     Active Substance: CLONAZEPAM
     Dosage: 4MILLIGRAM
     Route: 048
     Dates: start: 20210316, end: 20210316
  4. QUETIAPIN [Suspect]
     Active Substance: QUETIAPINE
     Dosage: 150MILLIGRAM
     Route: 048
     Dates: start: 20210316, end: 20210316
  5. DEPAKINE CHRONO [Suspect]
     Active Substance: VALPROATE SODIUM
     Dosage: 300MILLIGRAM
     Route: 048
     Dates: start: 20210316, end: 20210316

REACTIONS (3)
  - No adverse event [Unknown]
  - Suicide attempt [Unknown]
  - Intentional overdose [Unknown]

NARRATIVE: CASE EVENT DATE: 20210316
